FAERS Safety Report 24758630 (Version 1)
Quarter: 2024Q4

REPORT INFORMATION
  Report Type: Report from Study
  Country: CA (occurrence: CA)
  Receive Date: 20241220
  Receipt Date: 20241220
  Transmission Date: 20250114
  Serious: Yes (Other)
  Sender: NOVARTIS
  Company Number: CA-002147023-NVSC2024CA235419

PATIENT
  Age: 37 Year
  Sex: Female

DRUGS (2)
  1. COSENTYX [Suspect]
     Active Substance: SECUKINUMAB
     Indication: Hidradenitis
     Dosage: 300 MG, QW, (WEEKS 0, 1, 2, 3, AND 4)
     Route: 058
     Dates: start: 20241204
  2. COSENTYX [Suspect]
     Active Substance: SECUKINUMAB
     Dosage: UNK (ASSOCIATED INJECTION DATE)
     Route: 065
     Dates: start: 20241211

REACTIONS (2)
  - Haematochezia [Unknown]
  - Abdominal pain [Recovering/Resolving]

NARRATIVE: CASE EVENT DATE: 20240101
